FAERS Safety Report 5352882-7 (Version None)
Quarter: 2007Q2

REPORT INFORMATION
  Report Type: 
  Country: None (occurrence: None)
  Receive Date: 20070518
  Receipt Date: 20070417
  Transmission Date: 20071010
  Serious: No
  Sender: FDA-Public Use
  Company Number: TPA2007A00805

PATIENT
  Age: 45 Year
  Sex: Female
  Weight: 54.4316 kg

DRUGS (4)
  1. ROZEREM [Suspect]
     Indication: INITIAL INSOMNIA
     Dosage: 8 MG, HS, PER ORAL
     Route: 048
     Dates: start: 20070411, end: 20070414
  2. CLARITIN [Concomitant]
  3. TRAMADOL HCL [Concomitant]
  4. PAXIL [Concomitant]

REACTIONS (1)
  - DRUG INEFFECTIVE [None]
